FAERS Safety Report 17041363 (Version 1)
Quarter: 2019Q4

REPORT INFORMATION
  Report Type: Spontaneous
  Country: CA (occurrence: CA)
  Receive Date: 20191118
  Receipt Date: 20191118
  Transmission Date: 20200122
  Serious: Yes (Hospitalization, Other)
  Sender: FDA-Public Use
  Company Number: CA-TEVA-2019-CA-1136713

PATIENT
  Age: 34 Year
  Sex: Female
  Weight: 56 kg

DRUGS (7)
  1. PREDNISONE. [Suspect]
     Active Substance: PREDNISONE
     Indication: ABDOMINAL PAIN
     Dosage: 1 MILLIGRAM DAILY;
     Route: 048
  2. HUMIRA [Suspect]
     Active Substance: ADALIMUMAB
     Indication: CROHN^S DISEASE
     Dosage: SOLUTION SUBCUTANEOUS
     Route: 058
  3. MEFENAMIC ACID. [Suspect]
     Active Substance: MEFENAMIC ACID
     Indication: MIGRAINE
     Route: 065
  4. ACETAMINOPHEN. [Suspect]
     Active Substance: ACETAMINOPHEN
     Indication: MIGRAINE
     Route: 065
  5. AZATHIOPRINE. [Concomitant]
     Active Substance: AZATHIOPRINE
     Indication: PRODUCT USED FOR UNKNOWN INDICATION
  6. PREDNISONE. [Suspect]
     Active Substance: PREDNISONE
     Indication: MIGRAINE
     Route: 048
  7. PREDNISONE. [Suspect]
     Active Substance: PREDNISONE
     Indication: HAEMATOCHEZIA
     Route: 048

REACTIONS (13)
  - Grief reaction [Unknown]
  - Haematochezia [Unknown]
  - Defaecation urgency [Unknown]
  - Anxiety [Unknown]
  - Dizziness [Unknown]
  - Nausea [Unknown]
  - Migraine [Unknown]
  - Drug ineffective [Unknown]
  - Insomnia [Unknown]
  - Abdominal pain lower [Unknown]
  - Headache [Unknown]
  - Rectal haemorrhage [Unknown]
  - Therapeutic product effect incomplete [Unknown]
